FAERS Safety Report 11193541 (Version 1)
Quarter: 2015Q2

REPORT INFORMATION
  Report Type: Spontaneous
  Country: DK (occurrence: DK)
  Receive Date: 20150616
  Receipt Date: 20150616
  Transmission Date: 20150821
  Serious: Yes (Other)
  Sender: FDA-Public Use
  Company Number: PHHY2015DK069982

PATIENT
  Age: 44 Year
  Sex: Male

DRUGS (12)
  1. PREGABALIN. [Interacting]
     Active Substance: PREGABALIN
     Dosage: 75 MG, BID
     Route: 065
  2. PREGABALIN. [Interacting]
     Active Substance: PREGABALIN
     Dosage: 150 MG, MORNING
     Route: 065
  3. CLONAZEPAM. [Concomitant]
     Active Substance: CLONAZEPAM
     Indication: SCHIZOPHRENIA, PARANOID TYPE
     Dosage: 0.5 MG, BID
     Route: 065
  4. PREGABALIN. [Interacting]
     Active Substance: PREGABALIN
     Indication: SCHIZOPHRENIA, PARANOID TYPE
     Dosage: 75 MG, QD
     Route: 065
  5. PREGABALIN. [Interacting]
     Active Substance: PREGABALIN
     Dosage: 225 MG, MORNING
     Route: 065
  6. CLOZAPIN HEXAL [Interacting]
     Active Substance: CLOZAPINE
     Dosage: 500 MG, QD
     Route: 065
  7. CLONAZEPAM. [Concomitant]
     Active Substance: CLONAZEPAM
     Dosage: 0.5 MG, QD
     Route: 065
  8. PREGABALIN. [Interacting]
     Active Substance: PREGABALIN
     Dosage: 75 MG,EVENING
     Route: 065
  9. PREGABALIN. [Interacting]
     Active Substance: PREGABALIN
     Dosage: 75 MG, EVENING
     Route: 065
  10. CLOZAPIN HEXAL [Suspect]
     Active Substance: CLOZAPINE
     Indication: SCHIZOPHRENIA, PARANOID TYPE
     Dosage: 150 MG, QD
     Route: 065
  11. SERTINDOLE [Concomitant]
     Active Substance: SERTINDOLE
     Indication: SCHIZOPHRENIA, PARANOID TYPE
     Dosage: 16 MG, QD
     Route: 065
  12. VALPROATE [Concomitant]
     Active Substance: VALPROATE SODIUM
     Indication: SCHIZOPHRENIA, PARANOID TYPE
     Dosage: 300 MG, QD
     Route: 065

REACTIONS (6)
  - Depressed level of consciousness [Unknown]
  - Seizure [Unknown]
  - Drug interaction [Unknown]
  - Fracture [Unknown]
  - Dysarthria [Unknown]
  - Syncope [Unknown]
